FAERS Safety Report 8329198-X (Version None)
Quarter: 2012Q2

REPORT INFORMATION
  Report Type: 
  Country: None (occurrence: None)
  Receive Date: 20120502
  Receipt Date: 20110420
  Transmission Date: 20120825
  Serious: No
  Sender: FDA-Public Use
  Company Number: US-ASTRAZENECA-2011SE23056

PATIENT
  Age: 54 Year
  Sex: Female
  Weight: 86.2 kg

DRUGS (6)
  1. FASLODEX [Suspect]
     Indication: BREAST CANCER RECURRENT
     Route: 030
  2. CRESTOR [Concomitant]
     Indication: BLOOD CHOLESTEROL
     Route: 048
  3. SERTRALINE HYDROCHLORIDE [Concomitant]
     Indication: ANTIDEPRESSANT THERAPY
  4. TEMAZEPAM [Concomitant]
     Indication: SLEEP DISORDER
  5. ALENDROMAST [Concomitant]
     Indication: SUPPLEMENTATION THERAPY
  6. ALPRAZOLAM [Concomitant]
     Indication: ANXIETY

REACTIONS (1)
  - FEELING ABNORMAL [None]
